FAERS Safety Report 7503193-2 (Version None)
Quarter: 2011Q2

REPORT INFORMATION
  Report Type: 
  Country: None (occurrence: None)
  Receive Date: 20110525
  Receipt Date: 20101213
  Transmission Date: 20111010
  Serious: No
  Sender: FDA-Public Use
  Company Number: US-NOVEN-ALL1-2010-05872

PATIENT
  Sex: Male
  Weight: 25.85 kg

DRUGS (4)
  1. DAYTRANA [Suspect]
     Dosage: 20 MG, 1X/DAY:QD
     Route: 062
     Dates: start: 20090101, end: 20091001
  2. DAYTRANA [Suspect]
     Dosage: 30 MG, 1X/DAY:QD
     Dates: start: 20091001, end: 20101108
  3. SUPPLEMENT [Concomitant]
     Dosage: UNK, 1X/DAY:QD
     Route: 048
  4. DAYTRANA [Suspect]

REACTIONS (1)
  - DRUG INEFFECTIVE [None]
